FAERS Safety Report 10417467 (Version 1)
Quarter: 2014Q3

REPORT INFORMATION
  Report Type: Spontaneous
  Country: JP (occurrence: JP)
  Receive Date: 20140829
  Receipt Date: 20140829
  Transmission Date: 20150326
  Serious: Yes (Hospitalization)
  Sender: FDA-Public Use
  Company Number: JP-TAKEDA-2014TJP011191

PATIENT
  Age: 73 Year
  Sex: Male

DRUGS (5)
  1. BLOPRESS TABLETS 8 [Suspect]
     Active Substance: CANDESARTAN CILEXETIL
     Indication: SUICIDE ATTEMPT
     Dosage: 232 MG, UNK
     Route: 048
  2. GLIMEPIRIDE. [Suspect]
     Active Substance: GLIMEPIRIDE
     Indication: SUICIDE ATTEMPT
     Dosage: 234 MG, UNK
     Route: 048
  3. METFORMIN [Suspect]
     Active Substance: METFORMIN HYDROCHLORIDE
     Indication: SUICIDE ATTEMPT
     Dosage: 50000 MG, UNK
     Route: 048
  4. AMLODIPINE [Suspect]
     Active Substance: AMLODIPINE BESYLATE
     Indication: SUICIDE ATTEMPT
     Dosage: 420 MG, UNK
     Route: 048
  5. NESINA [Suspect]
     Active Substance: ALOGLIPTIN BENZOATE
     Indication: SUICIDE ATTEMPT
     Dosage: 12.5 MG, UNK
     Route: 048

REACTIONS (9)
  - Toxicity to various agents [Recovered/Resolved]
  - Hypoglycaemia [None]
  - Heart rate decreased [None]
  - Vomiting [None]
  - Hypothermia [None]
  - Shock [None]
  - Lactic acidosis [None]
  - Intentional overdose [None]
  - Intentional overdose [Unknown]
